FAERS Safety Report 5523495-9 (Version None)
Quarter: 2007Q4

REPORT INFORMATION
  Report Type: 
  Country: None (occurrence: None)
  Receive Date: 20071121
  Receipt Date: 20071108
  Transmission Date: 20080405
  Serious: Yes (Hospitalization)
  Sender: FDA-Public Use
  Company Number: ES-GENENTECH-250768

PATIENT
  Sex: Female

DRUGS (8)
  1. BEVACIZUMAB [Suspect]
     Indication: BREAST CANCER METASTATIC
     Dosage: 945 MG, Q3W
     Route: 042
     Dates: start: 20070723
  2. TRASTUZUMAB [Suspect]
     Indication: BREAST CANCER METASTATIC
     Dosage: 8 MG/KG, SINGLE
     Route: 042
     Dates: start: 20070723
  3. TRASTUZUMAB [Suspect]
     Dosage: 378 MG, Q3W
     Route: 042
  4. DOCETAXEL [Suspect]
     Indication: BREAST CANCER METASTATIC
     Dosage: 160 MG, Q3W
     Route: 042
     Dates: start: 20070724
  5. METFORMINA [Concomitant]
     Indication: DRUG USE FOR UNKNOWN INDICATION
     Dates: start: 20061215
  6. PRAVASTATINA [Concomitant]
     Indication: DRUG USE FOR UNKNOWN INDICATION
  7. NATECAL [Concomitant]
     Indication: DRUG USE FOR UNKNOWN INDICATION
  8. STILNOX [Concomitant]
     Indication: DRUG USE FOR UNKNOWN INDICATION

REACTIONS (2)
  - HAEMORRHOIDAL HAEMORRHAGE [None]
  - RECTAL HAEMORRHAGE [None]
